FAERS Safety Report 16808864 (Version 1)
Quarter: 2019Q3

REPORT INFORMATION
  Report Type: Spontaneous
  Country: DE (occurrence: DE)
  Receive Date: 20190916
  Receipt Date: 20190916
  Transmission Date: 20191005
  Serious: Yes (Hospitalization, Other)
  Sender: FDA-Public Use
  Company Number: DE-SUN PHARMACEUTICAL INDUSTRIES LTD-2018R1-168814

PATIENT
  Age: 49 Year
  Sex: Female
  Weight: 107 kg

DRUGS (8)
  1. PANTOPRAZOLE [Suspect]
     Active Substance: PANTOPRAZOLE
     Dosage: 160 MILLIGRAM, QD (80 MILLIGRAM, BID)
     Route: 048
     Dates: start: 20180208, end: 20180212
  2. PANTOPRAZOLE [Suspect]
     Active Substance: PANTOPRAZOLE
     Indication: GASTRITIS
     Dosage: 80 MG, BID
     Route: 048
     Dates: start: 20180209, end: 20180212
  3. MIDOSTAURIN [Suspect]
     Active Substance: MIDOSTAURIN
     Indication: ACUTE MYELOID LEUKAEMIA
     Dosage: 100 MILLIGRAM
     Route: 048
     Dates: start: 20180110, end: 20180110
  4. MIDOSTAURIN [Suspect]
     Active Substance: MIDOSTAURIN
     Dosage: UNK
     Route: 048
     Dates: start: 20180308
  5. PANTOPRAZOLE [Suspect]
     Active Substance: PANTOPRAZOLE
     Dosage: UNK
     Route: 048
     Dates: start: 20180212
  6. MIDOSTAURIN [Suspect]
     Active Substance: MIDOSTAURIN
     Dosage: 100 MILLIGRAM
     Route: 048
     Dates: start: 20180110, end: 20180111
  7. TAZOBACTAM [Suspect]
     Active Substance: TAZOBACTAM
     Dosage: UNK
     Route: 065
     Dates: start: 20180211, end: 20180211
  8. TAZOBACTAM [Suspect]
     Active Substance: TAZOBACTAM
     Indication: UROSEPSIS
     Dosage: 4.5 G, TID
     Route: 065
     Dates: start: 20180206, end: 20180211

REACTIONS (2)
  - Urosepsis [Recovered/Resolved]
  - Transaminases increased [Not Recovered/Not Resolved]

NARRATIVE: CASE EVENT DATE: 20180206
